FAERS Safety Report 8590271-2 (Version None)
Quarter: 2012Q3

REPORT INFORMATION
  Report Type: 
  Country: None (occurrence: None)
  Receive Date: 20120813
  Receipt Date: 20120808
  Transmission Date: 20120928
  Serious: Yes (Disabling)
  Sender: FDA-Public Use
  Company Number: US-GLAXOSMITHKLINE-A0988783A

PATIENT
  Age: 67 Year
  Sex: Female

DRUGS (10)
  1. DIOVAN HCT [Concomitant]
  2. DILTIAZEM [Concomitant]
  3. LIOTHYRONINE SODIUM [Concomitant]
  4. TEKTURNA [Concomitant]
  5. VYTORIN [Concomitant]
  6. CHROMIUM PICOLINATE [Concomitant]
  7. ISRADIPINE [Suspect]
     Indication: HYPERTENSION
     Route: 048
     Dates: start: 20080101, end: 20110101
  8. CYMBALTA [Concomitant]
  9. COENZYME Q10 [Concomitant]
  10. DYNACIRC CR [Suspect]
     Indication: HYPERTENSION
     Dosage: 10MG PER DAY
     Route: 048
     Dates: start: 20110101, end: 20120701

REACTIONS (1)
  - FAECAL INCONTINENCE [None]
